FAERS Safety Report 13913073 (Version 1)
Quarter: 2017Q3

REPORT INFORMATION
  Report Type: Other
  Country: GB (occurrence: US)
  Receive Date: 20170828
  Receipt Date: 20170828
  Transmission Date: 20171127
  Serious: Yes (Life-Threatening, Hospitalization, Other)
  Sender: FDA-Public Use
  Company Number: US-CLARIS PHARMASERVICES-2025208

PATIENT
  Age: 29 Year
  Sex: Female

DRUGS (5)
  1. FUROSEMIDE. [Suspect]
     Active Substance: FUROSEMIDE
     Indication: CONGESTIVE CARDIOMYOPATHY
  2. IVABRADINE [Suspect]
     Active Substance: IVABRADINE
  3. METOPROLOL. [Suspect]
     Active Substance: METOPROLOL
  4. SPIRONOLACTONE. [Concomitant]
     Active Substance: SPIRONOLACTONE
  5. LISINOPRIL. [Concomitant]
     Active Substance: LISINOPRIL

REACTIONS (3)
  - Cardio-respiratory arrest [Unknown]
  - Drug interaction [Unknown]
  - Torsade de pointes [Unknown]
